FAERS Safety Report 13158753 (Version 1)
Quarter: 2017Q1

REPORT INFORMATION
  Report Type: Spontaneous
  Country: ES (occurrence: ES)
  Receive Date: 20170127
  Receipt Date: 20170127
  Transmission Date: 20170428
  Serious: Yes (Other)
  Sender: FDA-Public Use
  Company Number: ES-BAYER-2016-238445

PATIENT
  Age: 31 Year
  Sex: Female

DRUGS (1)
  1. JAYDESS [Suspect]
     Active Substance: LEVONORGESTREL
     Dosage: 14 MCG/24HR, CONT
     Route: 015
     Dates: start: 20151223, end: 20161203

REACTIONS (3)
  - Drug ineffective [Unknown]
  - Ectopic pregnancy with contraceptive device [Unknown]
  - Peritoneal haemorrhage [Unknown]

NARRATIVE: CASE EVENT DATE: 2016
